FAERS Safety Report 23345746 (Version 1)
Quarter: 2023Q4

REPORT INFORMATION
  Report Type: Report from Study
  Country: ZA (occurrence: ZA)
  Receive Date: 20231228
  Receipt Date: 20231228
  Transmission Date: 20240110
  Serious: Yes (Hospitalization)
  Sender: FDA-Public Use
  Company Number: ZA-ABBVIE-5562053

PATIENT
  Age: 54 Year
  Sex: Female

DRUGS (1)
  1. RINVOQ [Suspect]
     Active Substance: UPADACITINIB
     Indication: Ankylosing spondylitis
     Dosage: FORM STRENGTH:15 MILLIGRAM
     Route: 048
     Dates: start: 20230917

REACTIONS (1)
  - Back pain [Recovering/Resolving]

NARRATIVE: CASE EVENT DATE: 20231201
